FAERS Safety Report 16643771 (Version 1)
Quarter: 2019Q3

REPORT INFORMATION
  Report Type: Spontaneous
  Country: US (occurrence: US)
  Receive Date: 20190729
  Receipt Date: 20190729
  Transmission Date: 20191004
  Serious: No
  Sender: FDA-Public Use
  Company Number: US-PRINSTON PHARMACEUTICAL INC.-2019PRN00555

PATIENT
  Sex: Female

DRUGS (3)
  1. CLONAZEPAM. [Suspect]
     Active Substance: CLONAZEPAM
     Indication: ANXIETY
     Dosage: 0.5 MG, ^2X/DAY AND AT BEDTIME^
     Route: 048
     Dates: start: 20190501
  2. TRAZODONE [Concomitant]
     Active Substance: TRAZODONE HYDROCHLORIDE
  3. BENZTROPINE. [Concomitant]
     Active Substance: BENZTROPINE

REACTIONS (5)
  - Blood test abnormal [Unknown]
  - False negative investigation result [Unknown]
  - Drug screen negative [Unknown]
  - Treatment noncompliance [Unknown]
  - Product use in unapproved indication [Not Recovered/Not Resolved]
